FAERS Safety Report 8334331-X (Version None)
Quarter: 2012Q1

REPORT INFORMATION
  Report Type: 
  Country: None (occurrence: None)
  Receive Date: 20120329
  Receipt Date: 20120117
  Transmission Date: 20120608
  Serious: Yes (Other)
  Sender: FDA-Public Use
  Company Number: WAES 1201USA02290

PATIENT
  Age: 55 Year
  Sex: Female
  Weight: 78.9259 kg

DRUGS (2)
  1. INJ IVEMEND UNK [Suspect]
     Indication: PROPHYLAXIS OF NAUSEA AND VOMITING
     Dosage: 150 MG/1X/IV
     Route: 042
     Dates: start: 20111222, end: 20111222
  2. INJ IVEMEND UNK [Suspect]
     Indication: PROPHYLAXIS OF NAUSEA AND VOMITING
     Dosage: 150 MG/1X/IV
     Route: 042
     Dates: start: 20120116, end: 20120116

REACTIONS (4)
  - NAUSEA [None]
  - DYSPEPSIA [None]
  - ERYTHEMA [None]
  - FLUSHING [None]
